FAERS Safety Report 6471325-3 (Version None)
Quarter: 2009Q4

REPORT INFORMATION
  Report Type: 
  Country: None (occurrence: None)
  Receive Date: 20091203
  Receipt Date: 20080225
  Transmission Date: 20100525
  Serious: Yes (Other)
  Sender: FDA-Public Use
  Company Number: FR-ELI_LILLY_AND_COMPANY-FR200802005436

PATIENT
  Sex: Female

DRUGS (3)
  1. PROZAC [Suspect]
     Dosage: 20 D/F, DAILY (1/D)
     Route: 048
  2. ATARAX [Concomitant]
     Dosage: 25 MG, DAILY (1/D)
     Route: 048
  3. RIVOTRIL [Concomitant]
     Dosage: 30 D/F, DAILY (1/D)
     Route: 048

REACTIONS (6)
  - ABORTION SPONTANEOUS [None]
  - BETA HAEMOLYTIC STREPTOCOCCAL INFECTION [None]
  - DRUG EXPOSURE DURING PREGNANCY [None]
  - GARDNERELLA INFECTION [None]
  - THREATENED LABOUR [None]
  - VAGINAL INFECTION [None]
